FAERS Safety Report 5373299-5 (Version None)
Quarter: 2007Q2

REPORT INFORMATION
  Report Type: 
  Country: None (occurrence: None)
  Receive Date: 20070626
  Receipt Date: 20070626
  Transmission Date: 20071010
  Serious: Yes (Hospitalization, Other)
  Sender: FDA-Public Use
  Company Number: None

PATIENT
  Sex: Female
  Weight: 70.3075 kg

DRUGS (15)
  1. ACCUTANE [Suspect]
     Indication: ACNE CYSTIC
     Dosage: PO
     Route: 048
     Dates: start: 19850901, end: 19861201
  2. ACCUTANE [Suspect]
     Indication: ACNE CYSTIC
     Dosage: PO
     Route: 048
     Dates: start: 19880701, end: 19890301
  3. PROZAC [Concomitant]
  4. EFFEXOR [Concomitant]
  5. WELLBUTRIN [Concomitant]
  6. CYMBALTA [Concomitant]
  7. LEXAPRO [Concomitant]
  8. LIPITOR [Concomitant]
  9. SYNTHROID [Concomitant]
  10. PREDNISONE TAB [Concomitant]
  11. PLAQUENIL [Concomitant]
  12. VICODIN [Concomitant]
  13. DARVOCET [Concomitant]
  14. PERCOCET [Concomitant]
  15. HYDROCODONE BITARTRATE [Concomitant]

REACTIONS (13)
  - ABORTION SPONTANEOUS [None]
  - AUTOIMMUNE DISORDER [None]
  - BLOOD CHOLESTEROL INCREASED [None]
  - DEPRESSION [None]
  - DRY EYE [None]
  - DRY MOUTH [None]
  - ECONOMIC PROBLEM [None]
  - FEELING GUILTY [None]
  - HYPOTHYROIDISM [None]
  - LOSS OF EMPLOYMENT [None]
  - LUPUS-LIKE SYNDROME [None]
  - NEUROPATHY PERIPHERAL [None]
  - SUICIDAL IDEATION [None]
